FAERS Safety Report 20719686 (Version 1)
Quarter: 2022Q2

REPORT INFORMATION
  Report Type: Spontaneous
  Country: US (occurrence: US)
  Receive Date: 20220418
  Receipt Date: 20220418
  Transmission Date: 20220720
  Serious: No
  Sender: FDA-Public Use
  Company Number: US-NOVARTISTESTPH-NVSC2022US085838

PATIENT
  Sex: Female

DRUGS (1)
  1. VOTRIENT [Suspect]
     Active Substance: PAZOPANIB HYDROCHLORIDE
     Indication: Uterine cancer
     Dosage: 400 MG, QD
     Route: 048
     Dates: start: 20220226

REACTIONS (3)
  - Urinary tract infection [Unknown]
  - Urine odour abnormal [Unknown]
  - Chromaturia [Unknown]
